FAERS Safety Report 16092157 (Version 1)
Quarter: 2019Q1

REPORT INFORMATION
  Report Type: Spontaneous
  Country: US (occurrence: US)
  Receive Date: 20190319
  Receipt Date: 20190319
  Transmission Date: 20190418
  Serious: Yes (Other)
  Sender: FDA-Public Use
  Company Number: US-CHILTERN-US-2019-000460

PATIENT
  Age: 72 Year
  Sex: Male

DRUGS (6)
  1. VIGAMOX [Concomitant]
     Active Substance: MOXIFLOXACIN HYDROCHLORIDE
     Indication: EYE OPERATION
     Dosage: UNK UNK, QID
     Route: 047
     Dates: start: 20190305
  2. DIAMOX                             /00016901/ [Concomitant]
     Active Substance: ACETAZOLAMIDE
     Indication: EYE OPERATION
     Dosage: 500 MG, UNK
     Route: 048
     Dates: start: 20190305
  3. RHOPRESSA [Suspect]
     Active Substance: NETARSUDIL MESYLATE
     Dosage: 1 GTT RIGHT EYE, BID
     Route: 047
     Dates: start: 201901, end: 20190305
  4. RHOPRESSA [Suspect]
     Active Substance: NETARSUDIL MESYLATE
     Indication: GLAUCOMA
     Dosage: 1 GTT RIGHT EYE, BID
     Route: 047
     Dates: start: 201809
  5. PREDNISOLONE ACETATE. [Concomitant]
     Active Substance: PREDNISOLONE ACETATE
     Indication: EYE OPERATION
     Dosage: UNK UNK, BID
     Route: 047
     Dates: start: 20190305
  6. CYCLOPENTOLATE. [Concomitant]
     Active Substance: CYCLOPENTOLATE
     Indication: EYE OPERATION
     Dosage: 1 GTT, BID
     Route: 047
     Dates: start: 20190305

REACTIONS (3)
  - Choroidal effusion [Not Recovered/Not Resolved]
  - Off label use [Unknown]
  - Choroidal haemorrhage [Recovering/Resolving]

NARRATIVE: CASE EVENT DATE: 20190219
